FAERS Safety Report 14472927 (Version 1)
Quarter: 2018Q1

REPORT INFORMATION
  Report Type: Spontaneous
  Country: FR (occurrence: FR)
  Receive Date: 20180201
  Receipt Date: 20180201
  Transmission Date: 20180509
  Serious: Yes (Other)
  Sender: FDA-Public Use
  Company Number: FR-MERCK KGAA-2041189

PATIENT
  Sex: Female

DRUGS (1)
  1. NOVOTHYROX [Suspect]
     Active Substance: LEVOTHYROXINE SODIUM
     Indication: POST PROCEDURAL HYPOTHYROIDISM
     Dates: start: 2017

REACTIONS (7)
  - Weight increased [None]
  - Blood thyroid stimulating hormone abnormal [None]
  - Myalgia [None]
  - Dyspnoea [None]
  - Hypothyroidism [None]
  - Hyperthyroidism [Recovered/Resolved]
  - Hypokinesia [None]

NARRATIVE: CASE EVENT DATE: 20170626
